FAERS Safety Report 4362333-7 (Version None)
Quarter: 2004Q2

REPORT INFORMATION
  Report Type: 
  Country: None (occurrence: None)
  Receive Date: 20040520
  Receipt Date: 20040520
  Transmission Date: 20050107
  Serious: Yes (Hospitalization)
  Sender: FDA-Public Use
  Company Number: None

PATIENT
  Age: 69 Year
  Sex: Male

DRUGS (4)
  1. COUMADIN [Suspect]
     Indication: ATRIAL FIBRILLATION
     Dosage: 7.5 MG SUN, T, THUR, 5 MG M-W-FRI-S
  2. DIAZEPAM [Concomitant]
  3. QUIETIPINE [Concomitant]
  4. OMEPRAZOLE [Concomitant]

REACTIONS (1)
  - COAGULOPATHY [None]
